FAERS Safety Report 6572416-9 (Version None)
Quarter: 2010Q1

REPORT INFORMATION
  Report Type: 
  Country: None (occurrence: None)
  Receive Date: 20100205
  Receipt Date: 20100128
  Transmission Date: 20100710
  Serious: Yes (Death, Hospitalization)
  Sender: FDA-Public Use
  Company Number: US-ELI_LILLY_AND_COMPANY-US201001005938

PATIENT
  Age: 61 Year
  Sex: Female
  Weight: 86 kg

DRUGS (17)
  1. GEMCITABINE HCL [Suspect]
     Indication: PANCREATIC CARCINOMA
     Dosage: 1000 MG/M2, UNK
     Route: 042
     Dates: start: 20090818, end: 20091124
  2. PANITUMUMAB [Suspect]
     Indication: PANCREATIC CARCINOMA
     Dosage: 4 MG/KG, UNK
     Route: 042
     Dates: start: 20090818, end: 20091124
  3. TARCEVA [Suspect]
     Indication: PANCREATIC CARCINOMA
     Dosage: 100 MG, DAILY (1/D)
     Route: 048
     Dates: start: 20090818, end: 20091207
  4. ALBUTEROL SULFATE AUTOHALER [Concomitant]
     Dosage: 2.5 MG, EVERY 6 HRS
     Route: 055
  5. IPRATROPIUM [Concomitant]
     Dosage: UNK, EVERY 6 HRS
     Route: 055
  6. ONDANSETRON [Concomitant]
     Dosage: 8 MG, 3/D
     Route: 048
  7. FENTANYL [Concomitant]
     Dosage: 50 UG, UNK
     Route: 062
  8. MAGNESIUM OXIDE [Concomitant]
     Dosage: 400 MG, 2/D
     Route: 048
  9. DEXTRIFERRON [Concomitant]
     Dosage: 150 MG, UNK
  10. PROCHLORPERAZINE EDISYLATE [Concomitant]
     Dosage: 10 MG, UNK
  11. PREGABALIN [Concomitant]
     Dosage: 300 MG, DAILY (1/D)
  12. DULOXETINE [Concomitant]
     Dosage: 60 MG, DAILY (1/D)
  13. LOTREL [Concomitant]
     Route: 048
  14. FEXOFENADINE [Concomitant]
     Dosage: 180 MG, DAILY (1/D)
  15. LANSOPRAZOLE [Concomitant]
     Dosage: 30 MG, DAILY (1/D)
  16. FUROSEMIDE [Concomitant]
     Dosage: 40 MG, DAILY (1/D)
  17. POTASSIUM CHLORIDE [Concomitant]
     Dosage: UNK, 3/D
     Route: 048

REACTIONS (4)
  - ACUTE RESPIRATORY DISTRESS SYNDROME [None]
  - DYSPNOEA [None]
  - HYPOXIA [None]
  - PNEUMONIA [None]
